FAERS Safety Report 8480929-8 (Version None)
Quarter: 2012Q3

REPORT INFORMATION
  Report Type: 
  Country: None (occurrence: None)
  Receive Date: 20120702
  Receipt Date: 20120629
  Transmission Date: 20120928
  Serious: Yes (Life-Threatening, Hospitalization)
  Sender: FDA-Public Use
  Company Number: JP-ABBOTT-12P-087-0937098-00

PATIENT
  Age: 59 Year
  Sex: Male

DRUGS (2)
  1. RHEUMATREX [Suspect]
     Indication: RHEUMATOID ARTHRITIS
     Route: 048
     Dates: end: 20120521
  2. HUMIRA [Suspect]
     Indication: RHEUMATOID ARTHRITIS
     Route: 058
     Dates: start: 20120508, end: 20120508

REACTIONS (3)
  - PYREXIA [None]
  - PNEUMONIA PNEUMOCOCCAL [None]
  - PNEUMONIA [None]
